FAERS Safety Report 8579029-8 (Version None)
Quarter: 2012Q3

REPORT INFORMATION
  Report Type: 
  Country: None (occurrence: None)
  Receive Date: 20120808
  Receipt Date: 20120731
  Transmission Date: 20120928
  Serious: Yes (Hospitalization)
  Sender: FDA-Public Use
  Company Number: US-B.I. PHARMACEUTICALS,INC./RIDGEFIELD-2012-BP-17272BP

PATIENT
  Sex: Female

DRUGS (30)
  1. SPIRIVA [Suspect]
     Indication: CHRONIC OBSTRUCTIVE PULMONARY DISEASE
     Dosage: 18 MCG
     Route: 055
     Dates: start: 20120301
  2. PROTONIX [Concomitant]
     Indication: GASTROOESOPHAGEAL REFLUX DISEASE
     Dosage: 40 MG
     Route: 048
  3. NARCO [Concomitant]
     Indication: THERAPEUTIC PROCEDURE
     Route: 048
     Dates: start: 20111201
  4. PROVERA [Concomitant]
     Indication: POSTMENOPAUSE
     Dosage: 10 MG
     Route: 048
     Dates: start: 19780101
  5. CLOTRIMAZOLE AND BETAMETHASONE DIPROPIONATE CREAM [Concomitant]
     Indication: VULVOVAGINAL CANDIDIASIS
  6. METOPROLOL TARTRATE [Concomitant]
     Indication: HYPERTENSION
     Dosage: 200 MG
     Route: 048
  7. SPIRIVA [Suspect]
     Indication: EMPHYSEMA
     Route: 055
     Dates: start: 20090101, end: 20090101
  8. CARTIA XT [Concomitant]
     Indication: ATRIAL FIBRILLATION
  9. MULTI-VITAMIN [Concomitant]
     Indication: VITAMIN SUPPLEMENTATION
     Route: 048
  10. OXYGEN [Concomitant]
     Route: 045
  11. TYLENOL [Concomitant]
     Indication: ARTHRITIS
     Route: 048
  12. COMBIVENT [Suspect]
     Indication: EMPHYSEMA
     Dosage: 8 PUF
     Route: 055
     Dates: start: 20000101
  13. COMBIVENT [Suspect]
     Route: 055
  14. POTASSIUM [Suspect]
     Indication: MINERAL SUPPLEMENTATION
     Dates: end: 20110101
  15. CARTIA XT [Concomitant]
     Indication: HEART RATE ABNORMAL
     Dosage: 360 MG
     Route: 048
  16. PREMARIN [Concomitant]
     Indication: POSTMENOPAUSE
     Dosage: 1.25 MG
     Route: 048
     Dates: start: 19780101
  17. CALCIUM CARBONATE [Concomitant]
     Indication: GASTROOESOPHAGEAL REFLUX DISEASE
     Route: 048
  18. CLOTRIMAZOLE AND BETAMETHASONE DIPROPIONATE CREAM [Concomitant]
     Indication: VULVOVAGINAL PRURITUS
  19. FISH OIL [Concomitant]
     Indication: ROUTINE HEALTH MAINTENANCE
     Route: 048
  20. COUMADIN [Concomitant]
     Indication: ATRIAL FIBRILLATION
     Route: 048
  21. VITAMIN B-12 [Concomitant]
     Indication: VITAMIN SUPPLEMENTATION
     Dates: start: 20120701
  22. FUROSEMIDE [Concomitant]
     Indication: DIURETIC THERAPY
     Dosage: 40 MG
     Route: 048
  23. TRAMADOL HCL [Concomitant]
     Indication: ARTHRITIS
     Route: 048
     Dates: start: 20020101
  24. PROMETHAZINE [Concomitant]
     Indication: NAUSEA
  25. FLUTICASONE PROPIONATE [Suspect]
     Dosage: 2 PUF
     Route: 055
  26. DIOVAN [Concomitant]
     Indication: HYPERTENSION
     Route: 048
  27. PRAVASTATIN [Concomitant]
     Indication: BLOOD CHOLESTEROL INCREASED
     Dosage: 40 MG
     Route: 048
  28. SPIRONOLACTONE [Concomitant]
     Indication: DIURETIC THERAPY
     Dosage: 25 MG
     Route: 048
     Dates: start: 20100101
  29. ASPIRIN [Concomitant]
     Indication: ISCHAEMIC HEART DISEASE PROPHYLAXIS
     Dosage: 81 MG
     Route: 048
     Dates: start: 19920101
  30. CALCIUM [Concomitant]
     Indication: MINERAL SUPPLEMENTATION
     Route: 048

REACTIONS (10)
  - MUSCLE SPASMS [None]
  - GLOSSODYNIA [None]
  - OXYGEN SATURATION DECREASED [None]
  - LOSS OF CONSCIOUSNESS [None]
  - DYSPNOEA [None]
  - MOVEMENT DISORDER [None]
  - DRUG INEFFECTIVE [None]
  - CHRONIC OBSTRUCTIVE PULMONARY DISEASE [None]
  - ORAL CANDIDIASIS [None]
  - PARANASAL SINUS HYPERSECRETION [None]
